FAERS Safety Report 16330807 (Version 1)
Quarter: 2019Q2

REPORT INFORMATION
  Report Type: Spontaneous
  Country: US (occurrence: US)
  Receive Date: 20190517
  Receipt Date: 20190517
  Transmission Date: 20190711
  Serious: No
  Sender: FDA-Public Use
  Company Number: None

PATIENT
  Age: 28 Year
  Sex: Female
  Weight: 106.2 kg

DRUGS (3)
  1. MULTIVITAMIN ONCE DAILY [Concomitant]
  2. SERTRALINE 200MG ONCE DAILY [Concomitant]
  3. ARIPIPRAZOLE. [Suspect]
     Active Substance: ARIPIPRAZOLE
     Indication: DEPRESSION
     Dosage: ?          QUANTITY:1 TABLET(S);?
     Route: 048

REACTIONS (3)
  - Headache [None]
  - Night sweats [None]
  - Insomnia [None]

NARRATIVE: CASE EVENT DATE: 20190515
